FAERS Safety Report 24694836 (Version 1)
Quarter: 2024Q4

REPORT INFORMATION
  Report Type: Spontaneous
  Country: CA (occurrence: CA)
  Receive Date: 20241204
  Receipt Date: 20241204
  Transmission Date: 20250115
  Serious: Yes (Death, Life-Threatening, Hospitalization, Disabling, Other)
  Sender: Haleon PLC
  Company Number: CA-SANDOZ-SDZ2024CA045628

PATIENT
  Age: 44 Year
  Sex: Female

DRUGS (201)
  1. DICLOFENAC SODIUM [Suspect]
     Active Substance: DICLOFENAC SODIUM
     Indication: Product used for unknown indication
     Dosage: ROA: OCULAR USE
  2. DICLOFENAC SODIUM [Suspect]
     Active Substance: DICLOFENAC SODIUM
     Route: 065
  3. PREDNISONE [Suspect]
     Active Substance: PREDNISONE
     Indication: Rheumatoid arthritis
     Route: 048
  4. PREDNISONE [Suspect]
     Active Substance: PREDNISONE
     Route: 048
  5. PREDNISONE [Suspect]
     Active Substance: PREDNISONE
     Route: 048
  6. ERGOCALCIFEROL [Concomitant]
     Active Substance: ERGOCALCIFEROL
     Indication: Product used for unknown indication
  7. OXYCODONE HYDROCHLORIDE [Suspect]
     Active Substance: OXYCODONE HYDROCHLORIDE
     Indication: Product used for unknown indication
     Route: 065
  8. OXYCODONE HYDROCHLORIDE [Suspect]
     Active Substance: OXYCODONE HYDROCHLORIDE
     Route: 065
  9. OXYCODONE HYDROCHLORIDE [Suspect]
     Active Substance: OXYCODONE HYDROCHLORIDE
     Route: 065
  10. OXYCODONE HYDROCHLORIDE [Suspect]
     Active Substance: OXYCODONE HYDROCHLORIDE
     Route: 065
  11. PERIOGARD [Suspect]
     Active Substance: CHLORHEXIDINE GLUCONATE
     Indication: Product used for unknown indication
     Route: 048
  12. PERIOGARD [Suspect]
     Active Substance: CHLORHEXIDINE GLUCONATE
     Route: 065
  13. STELARA [Suspect]
     Active Substance: USTEKINUMAB
     Indication: Product used for unknown indication
     Route: 058
  14. FISH OIL [Concomitant]
     Active Substance: FISH OIL
     Indication: Product used for unknown indication
  15. TOCILIZUMAB [Suspect]
     Active Substance: TOCILIZUMAB
     Indication: Rheumatoid arthritis
     Route: 065
  16. LANSOPRAZOLE [Concomitant]
     Active Substance: LANSOPRAZOLE
     Indication: Product used for unknown indication
  17. PANTOPRAZOLE SODIUM ANHYDROUS [Concomitant]
     Active Substance: PANTOPRAZOLE SODIUM ANHYDROUS
     Indication: Product used for unknown indication
  18. CHLORHEXIDINE GLUCONATE [Suspect]
     Active Substance: CHLORHEXIDINE GLUCONATE
     Indication: Product used for unknown indication
     Route: 065
  19. CHOLECALCIFEROL [Concomitant]
     Active Substance: CHOLECALCIFEROL
     Indication: Product used for unknown indication
  20. INFLIXIMAB [Suspect]
     Active Substance: INFLIXIMAB
     Indication: Rheumatoid arthritis
     Route: 065
  21. METHOTREXATE [Suspect]
     Active Substance: METHOTREXATE
     Indication: Rheumatoid arthritis
     Route: 048
  22. METHOTREXATE [Suspect]
     Active Substance: METHOTREXATE
  23. METHOTREXATE [Suspect]
     Active Substance: METHOTREXATE
     Route: 065
  24. METHOTREXATE [Suspect]
     Active Substance: METHOTREXATE
     Route: 048
  25. METHOTREXATE [Suspect]
     Active Substance: METHOTREXATE
     Route: 058
  26. METHOTREXATE [Suspect]
     Active Substance: METHOTREXATE
     Route: 013
  27. METHOTREXATE [Suspect]
     Active Substance: METHOTREXATE
     Route: 048
  28. METHOTREXATE [Suspect]
     Active Substance: METHOTREXATE
     Route: 065
  29. METHOTREXATE [Suspect]
     Active Substance: METHOTREXATE
     Route: 037
  30. METHOTREXATE [Suspect]
     Active Substance: METHOTREXATE
     Route: 048
  31. METHOTREXATE [Suspect]
     Active Substance: METHOTREXATE
  32. METHOTREXATE [Suspect]
     Active Substance: METHOTREXATE
     Route: 048
  33. METHOTREXATE [Suspect]
     Active Substance: METHOTREXATE
     Route: 048
  34. METHOTREXATE [Suspect]
     Active Substance: METHOTREXATE
     Route: 048
  35. METHOTREXATE [Suspect]
     Active Substance: METHOTREXATE
     Route: 048
  36. METHOTREXATE [Suspect]
     Active Substance: METHOTREXATE
     Route: 052
  37. CIMZIA [Suspect]
     Active Substance: CERTOLIZUMAB PEGOL
     Indication: Rheumatoid arthritis
     Route: 065
  38. CIMZIA [Suspect]
     Active Substance: CERTOLIZUMAB PEGOL
     Route: 058
  39. CIMZIA [Suspect]
     Active Substance: CERTOLIZUMAB PEGOL
     Route: 058
  40. DESOXIMETASONE [Suspect]
     Active Substance: DESOXIMETASONE
     Indication: Rheumatoid arthritis
     Route: 065
  41. DESOXIMETASONE [Suspect]
     Active Substance: DESOXIMETASONE
     Route: 061
  42. DESOXIMETASONE [Suspect]
     Active Substance: DESOXIMETASONE
     Route: 048
  43. ARAVA [Suspect]
     Active Substance: LEFLUNOMIDE
     Indication: Rheumatoid arthritis
     Route: 048
  44. ARAVA [Suspect]
     Active Substance: LEFLUNOMIDE
     Route: 048
  45. ARAVA [Suspect]
     Active Substance: LEFLUNOMIDE
     Route: 065
  46. CHLORHEXIDINE\LIDOCAINE [Suspect]
     Active Substance: CHLORHEXIDINE\LIDOCAINE
     Indication: Product used for unknown indication
     Route: 048
  47. CHLORHEXIDINE\LIDOCAINE [Suspect]
     Active Substance: CHLORHEXIDINE\LIDOCAINE
     Route: 065
  48. CHLORHEXIDINE\LIDOCAINE [Suspect]
     Active Substance: CHLORHEXIDINE\LIDOCAINE
     Route: 065
  49. CHLORHEXIDINE\LIDOCAINE [Suspect]
     Active Substance: CHLORHEXIDINE\LIDOCAINE
     Route: 061
  50. DESOGESTREL AND ETHINYL ESTRADIOL [Concomitant]
     Active Substance: DESOGESTREL\ETHINYL ESTRADIOL
     Indication: Product used for unknown indication
  51. CELEBREX [Suspect]
     Active Substance: CELECOXIB
     Indication: Product used for unknown indication
     Route: 048
  52. CELEBREX [Suspect]
     Active Substance: CELECOXIB
     Route: 065
  53. COSENTYX [Concomitant]
     Active Substance: SECUKINUMAB
     Indication: Product used for unknown indication
  54. PREDNISONE [Suspect]
     Active Substance: PREDNISONE
     Indication: Rheumatoid arthritis
     Route: 048
  55. PREDNISONE [Suspect]
     Active Substance: PREDNISONE
     Route: 065
  56. SECUKINUMAB [Suspect]
     Active Substance: SECUKINUMAB
     Indication: Product used for unknown indication
     Route: 065
  57. SULFASALAZINE [Concomitant]
     Active Substance: SULFASALAZINE
     Indication: Product used for unknown indication
  58. TYLENOL WITH CODEINE [Concomitant]
     Active Substance: ACETAMINOPHEN\CODEINE PHOSPHATE
     Indication: Product used for unknown indication
  59. RITUXIMAB [Suspect]
     Active Substance: RITUXIMAB
     Indication: Product used for unknown indication
     Route: 058
  60. RITUXIMAB [Suspect]
     Active Substance: RITUXIMAB
     Route: 065
  61. RITUXIMAB [Suspect]
     Active Substance: RITUXIMAB
     Route: 058
  62. RITUXIMAB [Suspect]
     Active Substance: RITUXIMAB
     Route: 042
  63. RITUXIMAB [Suspect]
     Active Substance: RITUXIMAB
     Route: 042
  64. RITUXIMAB [Suspect]
     Active Substance: RITUXIMAB
     Route: 042
  65. ENBREL [Suspect]
     Active Substance: ETANERCEPT
     Indication: Rheumatoid arthritis
     Route: 065
  66. ENBREL [Suspect]
     Active Substance: ETANERCEPT
     Route: 065
  67. ENBREL [Suspect]
     Active Substance: ETANERCEPT
     Route: 058
  68. ENBREL [Suspect]
     Active Substance: ETANERCEPT
     Route: 065
  69. ENBREL [Suspect]
     Active Substance: ETANERCEPT
     Route: 058
  70. ENBREL [Suspect]
     Active Substance: ETANERCEPT
     Route: 058
  71. ENBREL [Suspect]
     Active Substance: ETANERCEPT
     Route: 058
  72. ENBREL [Suspect]
     Active Substance: ETANERCEPT
     Route: 058
  73. ENBREL [Suspect]
     Active Substance: ETANERCEPT
     Route: 058
  74. ENBREL [Suspect]
     Active Substance: ETANERCEPT
     Route: 065
  75. GOLIMUMAB [Suspect]
     Active Substance: GOLIMUMAB
     Indication: Product used for unknown indication
     Route: 065
  76. XELJANZ [Suspect]
     Active Substance: TOFACITINIB CITRATE
     Indication: Rheumatoid arthritis
     Route: 065
  77. XELJANZ [Suspect]
     Active Substance: TOFACITINIB CITRATE
     Route: 065
  78. XELJANZ [Suspect]
     Active Substance: TOFACITINIB CITRATE
     Route: 065
  79. XELJANZ [Suspect]
     Active Substance: TOFACITINIB CITRATE
     Route: 065
  80. XELJANZ [Suspect]
     Active Substance: TOFACITINIB CITRATE
     Route: 065
  81. XELJANZ [Suspect]
     Active Substance: TOFACITINIB CITRATE
     Route: 065
  82. CETIRIZINE [Concomitant]
     Active Substance: CETIRIZINE HYDROCHLORIDE
     Indication: Product used for unknown indication
  83. FOLIC ACID [Suspect]
     Active Substance: FOLIC ACID
     Indication: Rheumatoid arthritis
     Route: 065
  84. FOLIC ACID [Suspect]
     Active Substance: FOLIC ACID
     Route: 065
  85. FOLIC ACID [Suspect]
     Active Substance: FOLIC ACID
     Route: 065
  86. CAFFEINE [Concomitant]
     Active Substance: CAFFEINE
     Indication: Product used for unknown indication
  87. PHTHALYLSULFATHIAZOLE [Suspect]
     Active Substance: PHTHALYLSULFATHIAZOLE
     Indication: Rheumatoid arthritis
     Route: 048
  88. PHTHALYLSULFATHIAZOLE [Suspect]
     Active Substance: PHTHALYLSULFATHIAZOLE
     Route: 048
  89. ACTEMRA [Suspect]
     Active Substance: TOCILIZUMAB
     Indication: Rheumatoid arthritis
     Route: 042
  90. ACTEMRA [Suspect]
     Active Substance: TOCILIZUMAB
     Route: 042
  91. ACTEMRA [Suspect]
     Active Substance: TOCILIZUMAB
     Route: 065
  92. ACTEMRA [Suspect]
     Active Substance: TOCILIZUMAB
     Route: 042
  93. ACTEMRA [Suspect]
     Active Substance: TOCILIZUMAB
     Route: 042
  94. ACTEMRA [Suspect]
     Active Substance: TOCILIZUMAB
     Route: 058
  95. ACTEMRA [Suspect]
     Active Substance: TOCILIZUMAB
     Route: 042
  96. ACTEMRA [Suspect]
     Active Substance: TOCILIZUMAB
     Route: 065
  97. ACTEMRA [Suspect]
     Active Substance: TOCILIZUMAB
     Route: 042
  98. ACTEMRA [Suspect]
     Active Substance: TOCILIZUMAB
     Route: 042
  99. ACTEMRA [Suspect]
     Active Substance: TOCILIZUMAB
     Route: 065
  100. ACTEMRA [Suspect]
     Active Substance: TOCILIZUMAB
     Route: 042
  101. ACTEMRA [Suspect]
     Active Substance: TOCILIZUMAB
     Route: 042
  102. ACTEMRA [Suspect]
     Active Substance: TOCILIZUMAB
     Route: 065
  103. ACTEMRA [Suspect]
     Active Substance: TOCILIZUMAB
  104. INFLECTRA [Suspect]
     Active Substance: INFLIXIMAB-DYYB
     Indication: Product used for unknown indication
     Route: 065
  105. VITAMIN C [Concomitant]
     Active Substance: ASCORBIC ACID
     Indication: Product used for unknown indication
  106. SULFAMETHOXAZOLE AND TRIMETHOPRIM [Concomitant]
     Active Substance: SULFAMETHOXAZOLE\TRIMETHOPRIM
     Indication: Product used for unknown indication
  107. CETIRIZINE HYDROCHLORIDE\PSEUDOEPHEDRINE HYDROCHLORIDE [Suspect]
     Active Substance: CETIRIZINE HYDROCHLORIDE\PSEUDOEPHEDRINE HYDROCHLORIDE
     Indication: Rheumatoid arthritis
     Route: 065
  108. CETIRIZINE HYDROCHLORIDE\PSEUDOEPHEDRINE HYDROCHLORIDE [Suspect]
     Active Substance: CETIRIZINE HYDROCHLORIDE\PSEUDOEPHEDRINE HYDROCHLORIDE
     Route: 065
  109. CETIRIZINE HYDROCHLORIDE\PSEUDOEPHEDRINE HYDROCHLORIDE [Suspect]
     Active Substance: CETIRIZINE HYDROCHLORIDE\PSEUDOEPHEDRINE HYDROCHLORIDE
     Route: 065
  110. PANTOPRAZOLE SODIUM [Concomitant]
     Active Substance: PANTOPRAZOLE SODIUM
     Indication: Product used for unknown indication
  111. ORENCIA [Suspect]
     Active Substance: ABATACEPT
     Indication: Rheumatoid arthritis
     Route: 058
  112. ORENCIA [Suspect]
     Active Substance: ABATACEPT
     Route: 058
  113. ORENCIA [Suspect]
     Active Substance: ABATACEPT
     Route: 042
  114. ORENCIA [Suspect]
     Active Substance: ABATACEPT
     Route: 058
  115. ORENCIA [Suspect]
     Active Substance: ABATACEPT
     Route: 042
  116. ORENCIA [Suspect]
     Active Substance: ABATACEPT
     Route: 058
  117. ORENCIA [Suspect]
     Active Substance: ABATACEPT
     Route: 042
  118. ORENCIA [Suspect]
     Active Substance: ABATACEPT
     Route: 042
  119. ORENCIA [Suspect]
     Active Substance: ABATACEPT
     Route: 042
  120. ORENCIA [Suspect]
     Active Substance: ABATACEPT
     Route: 058
  121. ORENCIA [Suspect]
     Active Substance: ABATACEPT
     Route: 058
  122. ORENCIA [Suspect]
     Active Substance: ABATACEPT
     Route: 058
  123. ORENCIA [Suspect]
     Active Substance: ABATACEPT
     Route: 042
  124. ORENCIA [Suspect]
     Active Substance: ABATACEPT
     Route: 058
  125. ORENCIA [Suspect]
     Active Substance: ABATACEPT
     Route: 058
  126. CODEINE [Concomitant]
     Active Substance: CODEINE
     Indication: Product used for unknown indication
  127. ALENDRONIC ACID [Suspect]
     Active Substance: ALENDRONIC ACID
     Indication: Rheumatoid arthritis
     Route: 065
  128. ALENDRONIC ACID [Suspect]
     Active Substance: ALENDRONIC ACID
     Route: 065
  129. TYLENOL [Suspect]
     Active Substance: ACETAMINOPHEN
     Indication: Rheumatoid arthritis
     Route: 042
  130. TYLENOL [Suspect]
     Active Substance: ACETAMINOPHEN
     Route: 065
  131. TYLENOL [Suspect]
     Active Substance: ACETAMINOPHEN
     Route: 058
  132. TYLENOL [Suspect]
     Active Substance: ACETAMINOPHEN
     Route: 065
  133. TYLENOL [Suspect]
     Active Substance: ACETAMINOPHEN
     Route: 058
  134. TYLENOL [Suspect]
     Active Substance: ACETAMINOPHEN
     Route: 042
  135. TRIMETHOPRIM [Concomitant]
     Active Substance: TRIMETHOPRIM
     Indication: Product used for unknown indication
  136. ZOPICLONE [Concomitant]
     Active Substance: ZOPICLONE
     Indication: Product used for unknown indication
  137. MARVELON [Concomitant]
     Active Substance: DESOGESTREL\ETHINYL ESTRADIOL
     Indication: Product used for unknown indication
  138. SULFASALAZINE [Suspect]
     Active Substance: SULFASALAZINE
     Indication: Rheumatoid arthritis
     Route: 048
  139. SULFASALAZINE [Suspect]
     Active Substance: SULFASALAZINE
     Route: 065
  140. SULFASALAZINE [Suspect]
     Active Substance: SULFASALAZINE
     Route: 048
  141. SULFASALAZINE [Suspect]
     Active Substance: SULFASALAZINE
     Route: 065
  142. SULFASALAZINE [Suspect]
     Active Substance: SULFASALAZINE
     Route: 048
  143. SULFASALAZINE [Suspect]
     Active Substance: SULFASALAZINE
     Route: 048
  144. SULFASALAZINE [Suspect]
     Active Substance: SULFASALAZINE
     Route: 048
  145. SULFASALAZINE [Suspect]
     Active Substance: SULFASALAZINE
     Route: 048
  146. ERELZI [Suspect]
     Active Substance: ETANERCEPT-SZZS
     Indication: Rheumatoid arthritis
     Route: 065
  147. LEFLUNOMIDE [Suspect]
     Active Substance: LEFLUNOMIDE
     Indication: Rheumatoid arthritis
     Route: 048
  148. LEFLUNOMIDE [Suspect]
     Active Substance: LEFLUNOMIDE
     Route: 048
  149. LEFLUNOMIDE [Suspect]
     Active Substance: LEFLUNOMIDE
     Route: 065
  150. LEFLUNOMIDE [Suspect]
     Active Substance: LEFLUNOMIDE
     Route: 048
  151. LEFLUNOMIDE [Suspect]
     Active Substance: LEFLUNOMIDE
     Route: 065
  152. LEFLUNOMIDE [Suspect]
     Active Substance: LEFLUNOMIDE
     Route: 058
  153. GLUCOSAMINE [Concomitant]
     Active Substance: GLUCOSAMINE
     Indication: Product used for unknown indication
  154. CORTISONE [Suspect]
     Active Substance: CORTISONE
     Indication: Product used for unknown indication
     Route: 048
  155. CORTISONE [Suspect]
     Active Substance: CORTISONE
     Route: 065
  156. CORTISONE [Suspect]
     Active Substance: CORTISONE
     Route: 065
  157. CORTISONE [Suspect]
     Active Substance: CORTISONE
     Route: 003
  158. CORTISONE [Suspect]
     Active Substance: CORTISONE
     Route: 003
  159. IBUPROFEN [Concomitant]
     Active Substance: IBUPROFEN
     Indication: Product used for unknown indication
  160. HUMIRA [Suspect]
     Active Substance: ADALIMUMAB
     Indication: Rheumatoid arthritis
     Route: 065
  161. HUMIRA [Suspect]
     Active Substance: ADALIMUMAB
     Route: 058
  162. ADALIMUMAB [Suspect]
     Active Substance: ADALIMUMAB
     Indication: Rheumatoid arthritis
     Route: 058
  163. ISOPROPYL ALCOHOL [Suspect]
     Active Substance: ISOPROPYL ALCOHOL
     Indication: Product used for unknown indication
     Route: 061
  164. ATIVAN [Concomitant]
     Active Substance: LORAZEPAM
     Indication: Product used for unknown indication
  165. CETIRIZINE HYDROCHLORIDE [Concomitant]
     Active Substance: CETIRIZINE HYDROCHLORIDE
     Indication: Product used for unknown indication
  166. PANADOL [Suspect]
     Active Substance: ACETAMINOPHEN
     Indication: Pyrexia
     Route: 065
  167. PANADOL [Suspect]
     Active Substance: ACETAMINOPHEN
     Route: 065
  168. PANADOL [Suspect]
     Active Substance: ACETAMINOPHEN
     Route: 065
  169. ACETAMINOPHEN AND CODEINE [Concomitant]
     Active Substance: ACETAMINOPHEN\CODEINE PHOSPHATE
     Indication: Product used for unknown indication
  170. LORAZEPAM [Concomitant]
     Active Substance: LORAZEPAM
     Indication: Product used for unknown indication
  171. PSEUDOEPHEDRINE [Suspect]
     Active Substance: PSEUDOEPHEDRINE
     Indication: Rheumatoid arthritis
     Route: 065
  172. PSEUDOEPHEDRINE [Suspect]
     Active Substance: PSEUDOEPHEDRINE
     Route: 065
  173. PSEUDOEPHEDRINE [Suspect]
     Active Substance: PSEUDOEPHEDRINE
     Route: 065
  174. SIMPONI [Suspect]
     Active Substance: GOLIMUMAB
     Indication: Rheumatoid arthritis
     Route: 052
  175. SIMPONI [Suspect]
     Active Substance: GOLIMUMAB
     Route: 065
  176. SIMPONI [Suspect]
     Active Substance: GOLIMUMAB
     Route: 042
  177. SIMPONI [Suspect]
     Active Substance: GOLIMUMAB
     Route: 058
  178. FOSAMAX [Suspect]
     Active Substance: ALENDRONATE SODIUM
     Indication: Rheumatoid arthritis
     Route: 065
  179. FOSAMAX [Suspect]
     Active Substance: ALENDRONATE SODIUM
     Route: 048
  180. TOFACITINIB [Suspect]
     Active Substance: TOFACITINIB
     Indication: Rheumatoid arthritis
     Route: 065
  181. TOFACITINIB [Suspect]
     Active Substance: TOFACITINIB
     Route: 065
  182. TOFACITINIB [Suspect]
     Active Substance: TOFACITINIB
     Route: 065
  183. TOFACITINIB [Suspect]
     Active Substance: TOFACITINIB
     Route: 065
  184. REMICADE [Suspect]
     Active Substance: INFLIXIMAB
     Indication: Rheumatoid arthritis
     Route: 065
  185. REMICADE [Suspect]
     Active Substance: INFLIXIMAB
     Route: 042
  186. REMICADE [Suspect]
     Active Substance: INFLIXIMAB
     Route: 058
  187. REMICADE [Suspect]
     Active Substance: INFLIXIMAB
     Route: 042
  188. ACETAMINOPHEN [Concomitant]
     Active Substance: ACETAMINOPHEN
     Indication: Product used for unknown indication
  189. OXYCODONE TEREPHTHALATE [Suspect]
     Active Substance: OXYCODONE TEREPHTHALATE
     Indication: Product used for unknown indication
     Route: 065
  190. SULFAMETHOXAZOLE AND TRIMETHOPRIM [Suspect]
     Active Substance: SULFAMETHOXAZOLE\TRIMETHOPRIM
     Indication: Product used for unknown indication
     Route: 065
  191. ACETAMINOPHEN [Suspect]
     Active Substance: ACETAMINOPHEN
     Indication: Product used for unknown indication
     Route: 065
  192. CHLORAPREP [Suspect]
     Active Substance: CHLORHEXIDINE GLUCONATE\ISOPROPYL ALCOHOL
     Indication: Rheumatoid arthritis
     Route: 065
  193. CHLORAPREP [Suspect]
     Active Substance: CHLORHEXIDINE GLUCONATE\ISOPROPYL ALCOHOL
     Route: 061
  194. DICLOFENAC POTASSIUM [Suspect]
     Active Substance: DICLOFENAC POTASSIUM
     Indication: Rheumatoid arthritis
     Route: 065
  195. HYDROCORTISONE [Suspect]
     Active Substance: HYDROCORTISONE
     Indication: Product used for unknown indication
     Route: 065
  196. ZYRTEC [Suspect]
     Active Substance: CETIRIZINE HYDROCHLORIDE
     Indication: Rheumatoid arthritis
     Route: 065
  197. ZYRTEC [Suspect]
     Active Substance: CETIRIZINE HYDROCHLORIDE
     Route: 065
  198. ZYRTEC [Suspect]
     Active Substance: CETIRIZINE HYDROCHLORIDE
     Route: 042
  199. PANTOPRAZOLE SODIUM [Suspect]
     Active Substance: PANTOPRAZOLE SODIUM
     Indication: Product used for unknown indication
     Route: 065
  200. ASCORBIC ACID [Suspect]
     Active Substance: ASCORBIC ACID
     Indication: Product used for unknown indication
     Route: 065
  201. ASCORBIC ACID [Suspect]
     Active Substance: ASCORBIC ACID
     Route: 016

REACTIONS (17)
  - Psoriatic arthropathy [Fatal]
  - Pregnancy [Fatal]
  - Osteoarthritis [Fatal]
  - Paraesthesia [Fatal]
  - Pyrexia [Fatal]
  - Peripheral swelling [Fatal]
  - Road traffic accident [Fatal]
  - Pruritus [Fatal]
  - Prescribed overdose [Fatal]
  - Rheumatic fever [Fatal]
  - Sinusitis [Fatal]
  - Product use issue [Fatal]
  - Rheumatoid arthritis [Fatal]
  - Peripheral venous disease [Fatal]
  - Rheumatoid factor positive [Fatal]
  - Product use in unapproved indication [Fatal]
  - Rash [Fatal]
